FAERS Safety Report 9238834 (Version 1)
Quarter: 2013Q2

REPORT INFORMATION
  Report Type: Spontaneous
  Country: US (occurrence: None)
  Receive Date: 20130417
  Receipt Date: 20130417
  Transmission Date: 20140414
  Serious: Yes (Life-Threatening, Hospitalization)
  Sender: FDA-Public Use
  Company Number: None

PATIENT
  Age: 31 Year
  Sex: Female
  Weight: 61.8 kg

DRUGS (1)
  1. RIFAMPIN [Suspect]
     Indication: TUBERCULOSIS
     Route: 048
     Dates: start: 20130315, end: 20130327

REACTIONS (5)
  - Thrombocytopenia [None]
  - Anaemia [None]
  - Renal failure acute [None]
  - Blood alkaline phosphatase increased [None]
  - Blood bilirubin increased [None]
